FAERS Safety Report 12587544 (Version 1)
Quarter: 2016Q3

REPORT INFORMATION
  Report Type: Report from Study
  Country: BR (occurrence: BR)
  Receive Date: 20160725
  Receipt Date: 20160725
  Transmission Date: 20161109
  Serious: Yes (Hospitalization, Other)
  Sender: FDA-Public Use
  Company Number: BR-UNITED THERAPEUTICS-UNT-2015-011632

PATIENT
  Age: 29 Year
  Sex: Female
  Weight: 82 kg

DRUGS (8)
  1. FUROSEMIDA                         /00032601/ [Concomitant]
     Active Substance: FUROSEMIDE
     Indication: PULMONARY ARTERIAL HYPERTENSION
     Dosage: 80 MG, TOTAL DAILY DOSE
     Dates: start: 20140813
  2. ESPIROLACTONA [Concomitant]
     Indication: PULMONARY ARTERIAL HYPERTENSION
     Dosage: 25 MG, TOTAL DAILY DOSE
     Dates: start: 20150204
  3. BROMOPRIDA [Concomitant]
     Indication: GASTRITIS
     Dosage: 30 MG, TOTAL DAILY DOSE
     Dates: start: 20150519
  4. OMEPRAZOL                          /00661201/ [Concomitant]
     Active Substance: OMEPRAZOLE
     Indication: GASTRITIS
     Dosage: 80 MG, TOTAL DAILY DOSE
     Route: 048
     Dates: start: 20150519
  5. UT-15C SR [Suspect]
     Active Substance: TREPROSTINIL DIOLAMINE
     Dosage: UNK
     Dates: start: 20150223
  6. SILDENAFIL. [Concomitant]
     Active Substance: SILDENAFIL
     Indication: PULMONARY ARTERIAL HYPERTENSION
     Dosage: 120 MG, TOTAL DAILY DOSE
     Dates: start: 20141001
  7. UT-15C SR [Suspect]
     Active Substance: TREPROSTINIL DIOLAMINE
     Indication: PULMONARY ARTERIAL HYPERTENSION
     Dosage: 2.0 MG, TID
     Route: 048
     Dates: start: 20150525, end: 20150921
  8. SILDENAFIL. [Concomitant]
     Active Substance: SILDENAFIL
     Dosage: 120 MG, TOTAL DAILY DOSE
     Dates: start: 20150520

REACTIONS (1)
  - Gastroenteritis [Recovered/Resolved]

NARRATIVE: CASE EVENT DATE: 20150915
